FAERS Safety Report 6815773-8 (Version None)
Quarter: 2010Q3

REPORT INFORMATION
  Report Type: 
  Country: None (occurrence: None)
  Receive Date: 20100705
  Receipt Date: 20100628
  Transmission Date: 20110219
  Serious: Yes (Other)
  Sender: FDA-Public Use
  Company Number: ES-MERCK-1006ESP00044

PATIENT
  Age: 79 Year
  Sex: Female

DRUGS (11)
  1. FOSAMAX PLUS D [Suspect]
     Route: 048
     Dates: start: 20050101, end: 20100527
  2. ACETAMINOPHEN [Concomitant]
     Route: 048
  3. ACETAMINOPHEN AND TRAMADOL HYDROCHLORIDE [Concomitant]
     Route: 048
  4. CODEINE PHOSPHATE [Concomitant]
     Route: 048
  5. DILTIAZEM HYDROCHLORIDE [Concomitant]
     Route: 048
  6. PIKETOPROFEN [Concomitant]
     Route: 061
  7. DIPYRONE [Concomitant]
     Route: 048
  8. OMEPRAZOLE [Concomitant]
     Route: 048
  9. INSULIN, BIPHASIC ISOPHANE [INJECTION] [Concomitant]
     Route: 058
  10. ATORVASTATIN CALCIUM [Concomitant]
     Route: 048
  11. ISOSORBIDE MONONITRATE [Concomitant]
     Route: 048

REACTIONS (2)
  - FEMUR FRACTURE [None]
  - FRACTURE DELAYED UNION [None]
